FAERS Safety Report 5861282-2 (Version None)
Quarter: 2008Q3

REPORT INFORMATION
  Report Type: 
  Country: None (occurrence: None)
  Receive Date: 20080827
  Receipt Date: 20080403
  Transmission Date: 20090109
  Serious: No
  Sender: FDA-Public Use
  Company Number: US-ABBOTT-08P-163-0445242-00

PATIENT
  Age: 56 Year
  Sex: Male

DRUGS (2)
  1. COATED PDS [Suspect]
     Indication: DRUG USE FOR UNKNOWN INDICATION
     Dates: start: 20080311, end: 20080317
  2. COATED PDS [Suspect]
     Dates: start: 20080318

REACTIONS (2)
  - DIARRHOEA [None]
  - FATIGUE [None]
